FAERS Safety Report 6746324-4 (Version None)
Quarter: 2010Q2

REPORT INFORMATION
  Report Type: 
  Country: None (occurrence: None)
  Receive Date: 20100528
  Receipt Date: 20100519
  Transmission Date: 20101027
  Serious: Yes (Hospitalization)
  Sender: FDA-Public Use
  Company Number: IT-PFIZER INC-2010038630

PATIENT
  Age: 40 Year
  Sex: Male

DRUGS (3)
  1. FELDENE [Suspect]
     Indication: INTENTIONAL OVERDOSE
     Dosage: 6 UNITS, TOTAL
     Route: 048
     Dates: start: 20100320, end: 20100320
  2. DIMETICONE [Suspect]
     Indication: INTENTIONAL OVERDOSE
     Dosage: 6 UNITS, TOTAL
     Route: 048
     Dates: start: 20100320, end: 20100320
  3. ALPRAZOLAM [Suspect]
     Indication: INTENTIONAL OVERDOSE
     Dosage: 20 ML, TOTAL
     Route: 048
     Dates: start: 20100320, end: 20100320

REACTIONS (3)
  - LOGORRHOEA [None]
  - MULTIPLE DRUG OVERDOSE INTENTIONAL [None]
  - SOPOR [None]
